FAERS Safety Report 5211577-0 (Version None)
Quarter: 2007Q1

REPORT INFORMATION
  Report Type: 
  Country: None (occurrence: None)
  Receive Date: 20070116
  Receipt Date: 20070116
  Transmission Date: 20070707
  Serious: Yes (Hospitalization)
  Sender: FDA-Public Use
  Company Number: None

PATIENT
  Age: 28 Year
  Sex: Female
  Weight: 90.7194 kg

DRUGS (3)
  1. GEODON [Suspect]
     Indication: POSTPARTUM DEPRESSION
     Dosage: 40 MG BID PO
     Route: 048
  2. LEXAPRO [Concomitant]
  3. ALPRAZOLAM [Concomitant]

REACTIONS (4)
  - DYSPHAGIA [None]
  - DYSTONIA [None]
  - MUSCULOSKELETAL STIFFNESS [None]
  - SWOLLEN TONGUE [None]
